FAERS Safety Report 21957184 (Version 1)
Quarter: 2023Q1

REPORT INFORMATION
  Report Type: Spontaneous
  Country: CZ (occurrence: CZ)
  Receive Date: 20230206
  Receipt Date: 20230206
  Transmission Date: 20230417
  Serious: Yes (Life-Threatening, Hospitalization, Other)
  Sender: FDA-Public Use
  Company Number: None

PATIENT
  Age: 50 Year
  Sex: Male
  Weight: 101 kg

DRUGS (3)
  1. YERVOY [Suspect]
     Active Substance: IPILIMUMAB
     Indication: Renal cancer
     Dosage: 4 CYCLES OF NIVOLUMAB 3MG/KG + IPILIMUMAB 1MG/KG AND 21 DAYS 12.11.2020-13.1.2021) AND THEN 2 CYCLES
     Route: 042
     Dates: start: 20201112, end: 20210113
  2. OPDIVO [Suspect]
     Active Substance: NIVOLUMAB
     Indication: Renal cancer
     Dosage: 4 CYCLES OF NIVOLUMAB 3MG/KG + IPILIMUMAB 1MG/KG AND 21 DAYS 12 NOV 2020 TO 13 JAN 2021) AND THEN 2
     Route: 042
     Dates: start: 20201112, end: 20210310
  3. AMLODIPINE [Concomitant]
     Active Substance: AMLODIPINE BESYLATE
     Indication: Product used for unknown indication

REACTIONS (3)
  - Abdominal pain [Recovered/Resolved]
  - Immune-mediated adrenal insufficiency [Recovering/Resolving]
  - Off label use [Unknown]

NARRATIVE: CASE EVENT DATE: 20221226
